FAERS Safety Report 8436559-7 (Version None)
Quarter: 2012Q2

REPORT INFORMATION
  Report Type: 
  Country: None (occurrence: None)
  Receive Date: 20120614
  Receipt Date: 20120604
  Transmission Date: 20120825
  Serious: No
  Sender: FDA-Public Use
  Company Number: US-ASTRAZENECA-2012SE37311

PATIENT
  Age: 41 Year
  Sex: Female
  Weight: 149.2 kg

DRUGS (10)
  1. TOPAMAX [Concomitant]
  2. SEROQUEL XR [Suspect]
     Route: 048
  3. HYZAAR [Concomitant]
  4. SYNTHROID [Concomitant]
  5. SEROQUEL XR [Suspect]
     Indication: BIPOLAR DISORDER
     Route: 048
  6. ASTHMA MEDICATION [Concomitant]
  7. SEROQUEL XR [Suspect]
     Route: 048
  8. DEPAKOTE [Concomitant]
  9. CELEXA [Concomitant]
  10. FLONASE [Concomitant]

REACTIONS (2)
  - HYPERSOMNIA [None]
  - GASTRIC DISORDER [None]
